FAERS Safety Report 8856630 (Version 1)
Quarter: 2012Q4

REPORT INFORMATION
  Report Type: Spontaneous
  Country: US (occurrence: None)
  Receive Date: 20121024
  Receipt Date: 20121024
  Transmission Date: 20130627
  Serious: No
  Sender: FDA-Public Use
  Company Number: None

PATIENT
  Age: 66 Year
  Sex: Female

DRUGS (1)
  1. COMPAZINE [Suspect]
     Indication: NAUSEA
     Route: 042
     Dates: start: 20120901, end: 20120901

REACTIONS (1)
  - No adverse event [None]
